FAERS Safety Report 7633590-6 (Version None)
Quarter: 2011Q3

REPORT INFORMATION
  Report Type: 
  Country: None (occurrence: None)
  Receive Date: 20110725
  Receipt Date: 20110718
  Transmission Date: 20111222
  Serious: Yes (Other)
  Sender: FDA-Public Use
  Company Number: US-GLAXOSMITHKLINE-A0919427A

PATIENT
  Age: 63 Year
  Sex: Male

DRUGS (3)
  1. VENTOLIN HFA [Suspect]
     Indication: ASTHMA
     Dosage: 1PUFF AS REQUIRED
     Route: 055
  2. BENADRYL [Concomitant]
  3. ADVAIR DISKUS 100/50 [Suspect]
     Indication: ASTHMA
     Dosage: 1PUFF TWICE PER DAY
     Route: 055
     Dates: start: 20100301

REACTIONS (4)
  - RESPIRATORY DISTRESS [None]
  - COUGH [None]
  - DRUG INEFFECTIVE [None]
  - ASTHMA [None]
